FAERS Safety Report 5134113-6 (Version None)
Quarter: 2006Q4

REPORT INFORMATION
  Report Type: 
  Country: None (occurrence: None)
  Receive Date: 20061024
  Receipt Date: 20061016
  Transmission Date: 20070319
  Serious: Yes (Hospitalization)
  Sender: FDA-Public Use
  Company Number: FR-AVENTIS-200613607FR

PATIENT
  Age: 50 Year
  Sex: Male

DRUGS (2)
  1. KETEK [Suspect]
     Indication: SINUSITIS
     Route: 048
     Dates: start: 20061002, end: 20061003
  2. AUGMENTIN                          /00756801/ [Concomitant]
     Indication: SINUSITIS
     Dates: start: 20061004

REACTIONS (9)
  - CHILLS [None]
  - CHROMATURIA [None]
  - CYTOLYTIC HEPATITIS [None]
  - HEPATIC PAIN [None]
  - MALAISE [None]
  - MYALGIA [None]
  - NAUSEA [None]
  - PYREXIA [None]
  - TACHYCARDIA [None]
